FAERS Safety Report 6295118-5 (Version None)
Quarter: 2009Q3

REPORT INFORMATION
  Report Type: 
  Country: None (occurrence: None)
  Receive Date: 20090803
  Receipt Date: 20090730
  Transmission Date: 20100115
  Serious: Yes (Death, Hospitalization, Other)
  Sender: FDA-Public Use
  Company Number: PHEH2009US07960

PATIENT
  Sex: Male

DRUGS (5)
  1. EXJADE [Suspect]
     Indication: BLOOD IRON INCREASED
     Dosage: 250 MG DAILY
     Route: 048
     Dates: start: 20080220, end: 20090620
  2. LASIX [Concomitant]
  3. SYNTHROID [Concomitant]
  4. LOPRESSOR [Concomitant]
  5. FLOMAX [Concomitant]

REACTIONS (3)
  - COLECTOMY [None]
  - RECTAL HAEMORRHAGE [None]
  - RESPIRATORY FAILURE [None]
